FAERS Safety Report 19037379 (Version 1)
Quarter: 2021Q1

REPORT INFORMATION
  Report Type: Spontaneous
  Country: DE (occurrence: DE)
  Receive Date: 20210322
  Receipt Date: 20210322
  Transmission Date: 20210420
  Serious: Yes (Death, Life-Threatening, Hospitalization, Other)
  Sender: FDA-Public Use
  Company Number: DE-EPICPHARMA-DE-2021EPCLIT00277

PATIENT
  Age: 61 Year
  Sex: Female

DRUGS (8)
  1. BISOPROLOL [Suspect]
     Active Substance: BISOPROLOL
     Indication: PRODUCT USED FOR UNKNOWN INDICATION
     Dosage: 90 TABLETS
     Route: 065
  2. GLUCAGON. [Interacting]
     Active Substance: GLUCAGON
     Indication: CIRCULATORY COLLAPSE
     Route: 065
  3. METFORMIN HYDROCHLORIDE. [Suspect]
     Active Substance: METFORMIN HYDROCHLORIDE
     Indication: PRODUCT USED FOR UNKNOWN INDICATION
     Dosage: 90 TABLETS
     Route: 065
  4. AMLODIPINE [Suspect]
     Active Substance: AMLODIPINE BESYLATE
     Indication: PRODUCT USED FOR UNKNOWN INDICATION
     Route: 065
  5. NOREPINEPHRINE. [Interacting]
     Active Substance: NOREPINEPHRINE
     Indication: CIRCULATORY COLLAPSE
     Dosage: 2 MICROG/KG/MIN
     Route: 065
  6. CHARCOAL [Interacting]
     Active Substance: ACTIVATED CHARCOAL
     Indication: CIRCULATORY COLLAPSE
     Route: 065
  7. EPINEPHRINE. [Interacting]
     Active Substance: EPINEPHRINE
     Indication: CIRCULATORY COLLAPSE
     Dosage: 1 MICROG/KG/MIN
     Route: 065
  8. VASOPRESSIN. [Interacting]
     Active Substance: VASOPRESSIN
     Indication: CIRCULATORY COLLAPSE
     Route: 065

REACTIONS (7)
  - Overdose [Fatal]
  - Circulatory collapse [Not Recovered/Not Resolved]
  - Cardiac arrest [Recovering/Resolving]
  - Toxicity to various agents [Fatal]
  - Multiple organ dysfunction syndrome [Fatal]
  - Rhabdomyolysis [Unknown]
  - Lactic acidosis [Fatal]
